FAERS Safety Report 9939322 (Version 1)
Quarter: 2014Q1

REPORT INFORMATION
  Report Type: Report from Study
  Country: US (occurrence: US)
  Receive Date: 20140303
  Receipt Date: 20140303
  Transmission Date: 20141002
  Serious: No
  Sender: FDA-Public Use
  Company Number: US-ABBVIE-13P-163-1034674-00

PATIENT
  Sex: Female
  Weight: 43.13 kg

DRUGS (2)
  1. HUMIRA PEN [Suspect]
     Indication: PSORIASIS
     Dates: start: 2010
  2. HUMIRA PEN [Suspect]
     Indication: PSORIATIC ARTHROPATHY

REACTIONS (5)
  - Stress [Unknown]
  - Psoriasis [Recovered/Resolved]
  - Psoriasis [Not Recovered/Not Resolved]
  - Arthritis [Recovered/Resolved]
  - Urinary tract infection [Not Recovered/Not Resolved]
